FAERS Safety Report 5179902-7 (Version None)
Quarter: 2006Q4

REPORT INFORMATION
  Report Type: 
  Country: None (occurrence: None)
  Receive Date: 20061211
  Receipt Date: 20061129
  Transmission Date: 20070319
  Serious: Yes (Other)
  Sender: FDA-Public Use
  Company Number: 2006097010

PATIENT
  Age: 58 Year
  Sex: Male
  Weight: 90.7194 kg

DRUGS (5)
  1. DEPO-MEDROL [Suspect]
     Indication: BACK PAIN
     Dates: start: 20060623
  2. NEURONTIN [Suspect]
     Indication: BACK PAIN
     Dates: start: 20061101, end: 20061101
  3. LYRICA [Suspect]
     Indication: BACK PAIN
     Dosage: 100 MG (100 MG, 1 IN 1 D), ORAL
     Route: 048
     Dates: start: 20061127, end: 20061129
  4. ALBUTEROL [Concomitant]
  5. ADVAIR DISKUS 100/50 [Concomitant]

REACTIONS (11)
  - ASTHENIA [None]
  - DRUG ADMINISTRATION ERROR [None]
  - DRUG INEFFECTIVE [None]
  - DYSSTASIA [None]
  - FEAR [None]
  - LAZINESS [None]
  - MOBILITY DECREASED [None]
  - MUSCULAR WEAKNESS [None]
  - NEUROPATHY [None]
  - PAIN [None]
  - SOMNOLENCE [None]
